FAERS Safety Report 6277651-5 (Version None)
Quarter: 2009Q3

REPORT INFORMATION
  Report Type: 
  Country: None (occurrence: None)
  Receive Date: 20090717
  Receipt Date: 20090717
  Transmission Date: 20100115
  Serious: No
  Sender: FDA-Public Use
  Company Number: None

PATIENT
  Sex: Female
  Weight: 25.4014 kg

DRUGS (1)
  1. MALATHION [Suspect]
     Indication: LICE INFESTATION
     Dosage: 1 APPLICATION
     Dates: start: 20090620, end: 20090620

REACTIONS (2)
  - BURNING SENSATION [None]
  - PAIN [None]
